FAERS Safety Report 25863471 (Version 1)
Quarter: 2025Q3

REPORT INFORMATION
  Report Type: Report from Study
  Country: CO (occurrence: CO)
  Receive Date: 20250930
  Receipt Date: 20250930
  Transmission Date: 20251020
  Serious: Yes (Hospitalization)
  Sender: BIOVITRUM
  Company Number: CO-AstraZeneca-CH-00958314A

PATIENT
  Age: 8 Month
  Sex: Male

DRUGS (1)
  1. PALIVIZUMAB [Suspect]
     Active Substance: PALIVIZUMAB
     Indication: Antiviral prophylaxis
     Route: 030
     Dates: start: 20250115

REACTIONS (5)
  - Bronchiolitis [Recovering/Resolving]
  - Crying [Unknown]
  - Sleep disorder [Unknown]
  - Ear infection [Unknown]
  - Iron deficiency [Unknown]

NARRATIVE: CASE EVENT DATE: 20250901
